FAERS Safety Report 9315080 (Version 2)
Quarter: 2013Q3

REPORT INFORMATION
  Report Type: Spontaneous
  Country: US (occurrence: US)
  Receive Date: 20130529
  Receipt Date: 20130826
  Transmission Date: 20140515
  Serious: Yes (Other)
  Sender: FDA-Public Use
  Company Number: US-JNJFOC-20130510524

PATIENT
  Sex: 0

DRUGS (1)
  1. LOPERAMIDE [Suspect]
     Indication: DRUG WITHDRAWAL SYNDROME
     Route: 065

REACTIONS (12)
  - Euphoric mood [Unknown]
  - Dehydration [Unknown]
  - Drug abuse [Unknown]
  - Potentiating drug interaction [Unknown]
  - Eating disorder [Unknown]
  - Abdominal discomfort [Unknown]
  - Constipation [Unknown]
  - Drug withdrawal syndrome [Unknown]
  - Off label use [Unknown]
  - Intentional overdose [Unknown]
  - Therapeutic response unexpected [Unknown]
  - Pain management [Unknown]
